FAERS Safety Report 16698521 (Version 1)
Quarter: 2019Q3

REPORT INFORMATION
  Report Type: Spontaneous
  Country: CA (occurrence: CA)
  Receive Date: 20190813
  Receipt Date: 20190813
  Transmission Date: 20191004
  Serious: Yes (Disabling)
  Sender: FDA-Public Use
  Company Number: CA-TEVA-2019-CA-1091472

PATIENT
  Age: 57 Year
  Sex: Female
  Weight: 56.75 kg

DRUGS (1)
  1. ACT DEXTROAMPHETAMINE SR [Suspect]
     Active Substance: DEXTROAMPHETAMINE SULFATE
     Indication: FATIGUE
     Dosage: 10 MILLIGRAM DAILY;
     Route: 048

REACTIONS (4)
  - Fatigue [Recovered/Resolved]
  - Malaise [Recovered/Resolved]
  - Nausea [Recovered/Resolved]
  - Drug ineffective [Recovered/Resolved]
